FAERS Safety Report 14935344 (Version 2)
Quarter: 2019Q3

REPORT INFORMATION
  Report Type: Report from Study
  Country: US (occurrence: US)
  Receive Date: 20180524
  Receipt Date: 20190702
  Transmission Date: 20191004
  Serious: Yes (Hospitalization, Other)
  Sender: FDA-Public Use
  Company Number: US-PFIZER INC-2018207138

PATIENT
  Age: 58 Year
  Sex: Male

DRUGS (36)
  1. GLUCOPHAGE [Concomitant]
     Active Substance: METFORMIN HYDROCHLORIDE
     Dosage: 500 MG, UNK
  2. COMPAZINE [Concomitant]
     Active Substance: PROCHLORPERAZINE MALEATE
  3. HUMALOG [Concomitant]
     Active Substance: INSULIN LISPRO
  4. METHYLPREDNISOLONE SODIUM SUCCINATE. [Suspect]
     Active Substance: METHYLPREDNISOLONE SODIUM SUCCINATE
     Dosage: 40 MG, BID
     Route: 042
     Dates: start: 20180322, end: 20180329
  5. ATIVAN [Concomitant]
     Active Substance: LORAZEPAM
  6. MORPHINE [Concomitant]
     Active Substance: MORPHINE
  7. ALDACTONE [Concomitant]
     Active Substance: SPIRONOLACTONE
     Dosage: 100 MG, UNK
  8. PREDNISONE. [Suspect]
     Active Substance: PREDNISONE
     Indication: ACUTE GRAFT VERSUS HOST DISEASE
     Dosage: 80 MG, 2X/DAY
     Route: 048
     Dates: start: 20180205, end: 20180209
  9. CELEXA [Concomitant]
     Active Substance: CITALOPRAM HYDROBROMIDE
     Dosage: 40 MG, UNK
  10. IMODIUM [Concomitant]
     Active Substance: LOPERAMIDE HYDROCHLORIDE
     Dosage: 2 MG, UNK
  11. OXYCODONE [Concomitant]
     Active Substance: OXYCODONE
     Dosage: 5 MG, UNK
  12. ACTIGALL [Concomitant]
     Active Substance: URSODIOL
     Dosage: 300 MG, UNK
  13. ENTOCORT EC [Concomitant]
     Active Substance: BUDESONIDE
     Dosage: 3 MG, UNK
     Dates: start: 20180213
  14. FAMVIR [Concomitant]
     Active Substance: FAMCICLOVIR
     Dosage: 500 MG, UNK
  15. REMERON [Concomitant]
     Active Substance: MIRTAZAPINE
     Dosage: 30 MG, UNK
  16. ZYPREXA [Concomitant]
     Active Substance: OLANZAPINE
     Dosage: 2.5 MG, UNK
  17. PRILOSEC [Concomitant]
     Active Substance: OMEPRAZOLE MAGNESIUM
     Dosage: 20 MG, UNK
  18. MEPRON [Concomitant]
     Active Substance: ATOVAQUONE
     Dosage: 750/5 MG/ML
     Route: 048
  19. LASIX [Concomitant]
     Active Substance: FUROSEMIDE
     Dosage: 20 MG, UNK
  20. MAGNESIUM SULFATE. [Concomitant]
     Active Substance: MAGNESIUM SULFATE
  21. SEROQUEL [Concomitant]
     Active Substance: QUETIAPINE FUMARATE
     Dosage: 75 MG, UNK
  22. MAG-OX [Concomitant]
     Active Substance: MAGNESIUM OXIDE
     Dosage: 400 MG, UNK
  23. SIMETHICONE (DIMETHICONE) [Concomitant]
     Active Substance: DIMETHICONE
     Dosage: 80 MG, UNK
  24. NOXAFIL [Concomitant]
     Active Substance: POSACONAZOLE
     Dosage: 400 MG, UNK
  25. ARTIFICIAL TEARS [Concomitant]
     Active Substance: GLYCERIN\HYPROMELLOSES\POLYETHYLENE GLYCOL 400
     Dosage: SOLUTION 0.1-0.3%
  26. DIFLUCAN [Concomitant]
     Active Substance: FLUCONAZOLE
     Dosage: 200 MG, UNK
  27. HEPARIN [Concomitant]
     Active Substance: HEPARIN SODIUM
  28. MELATONIN [Concomitant]
     Active Substance: MELATONIN
     Dosage: 3 MG, UNK
  29. ACETAMINOPHEN. [Concomitant]
     Active Substance: ACETAMINOPHEN
     Dosage: 325-650 MG
  30. NPH INSULIN (HUMULIN N, NOVOLIN N) [Concomitant]
  31. EUCERIN [SALICYLIC ACID] [Concomitant]
  32. METHYLPREDNISOLONE SODIUM SUCCINATE. [Suspect]
     Active Substance: METHYLPREDNISOLONE SODIUM SUCCINATE
     Indication: ACUTE GRAFT VERSUS HOST DISEASE
     Dosage: 30 MG, CYCLIC Q12H
     Route: 042
     Dates: start: 20180204
  33. CARDIZEM CD [Concomitant]
     Active Substance: DILTIAZEM HYDROCHLORIDE
     Dosage: 120 MG, UNK
  34. PROGRAF [Concomitant]
     Active Substance: TACROLIMUS\TACROLIMUS ANHYDROUS
     Dosage: 0.5 MG, UNK
  35. HYDROMORPHONE [Concomitant]
     Active Substance: HYDROMORPHONE
  36. K-DUR [Concomitant]
     Active Substance: POTASSIUM CHLORIDE

REACTIONS (5)
  - Thrombocytopenia [Not Recovered/Not Resolved]
  - Ileus [Recovered/Resolved]
  - Diarrhoea [Recovered/Resolved]
  - Failure to thrive [Recovered/Resolved]
  - Clostridium difficile colitis [Recovered/Resolved]

NARRATIVE: CASE EVENT DATE: 20180215
